FAERS Safety Report 13739158 (Version 1)
Quarter: 2017Q3

REPORT INFORMATION
  Report Type: Spontaneous
  Country: US (occurrence: US)
  Receive Date: 20170710
  Receipt Date: 20170710
  Transmission Date: 20171127
  Serious: Yes (Other)
  Sender: FDA-Public Use
  Company Number: US-SAOL THERAPEUTICS-2017SAO00640

PATIENT
  Sex: Male

DRUGS (2)
  1. BACLOFEN. [Suspect]
     Active Substance: BACLOFEN
     Indication: MUSCLE SPASTICITY
     Dosage: 75.03 ?G, \DAY
     Dates: end: 20170328
  2. BACLOFEN. [Suspect]
     Active Substance: BACLOFEN
     Dosage: 59.99 ?G, \DAY
     Route: 037
     Dates: start: 20170328

REACTIONS (3)
  - Pain [Unknown]
  - Muscle spasticity [Unknown]
  - Hypotonia [Recovered/Resolved]

NARRATIVE: CASE EVENT DATE: 201703
